FAERS Safety Report 5619127-1 (Version None)
Quarter: 2008Q1

REPORT INFORMATION
  Report Type: 
  Country: None (occurrence: None)
  Receive Date: 20080205
  Receipt Date: 20080128
  Transmission Date: 20080703
  Serious: Yes (Life-Threatening, Hospitalization)
  Sender: FDA-Public Use
  Company Number: 2008US000371

PATIENT
  Age: 36 Year
  Sex: Female

DRUGS (2)
  1. MYCAMINE [Suspect]
     Indication: ASPERGILLOSIS
     Dosage: 150 MG, UID/QD
     Dates: start: 20070714, end: 20070723
  2. VORICONAZLOLE (VORICONAZOLE) [Concomitant]

REACTIONS (2)
  - HEPATOTOXICITY [None]
  - NEPHROPATHY TOXIC [None]
